FAERS Safety Report 5945595-1 (Version None)
Quarter: 2008Q4

REPORT INFORMATION
  Report Type: 
  Country: None (occurrence: None)
  Receive Date: 20081107
  Receipt Date: 20081027
  Transmission Date: 20090506
  Serious: Yes (Life-Threatening, Disabling)
  Sender: FDA-Public Use
  Company Number: BR-PFIZER INC-2008091168

PATIENT
  Sex: Female
  Weight: 53 kg

DRUGS (1)
  1. CHAMPIX [Suspect]
     Indication: TOBACCO USER
     Route: 048
     Dates: start: 20080101, end: 20081001

REACTIONS (7)
  - ANXIETY [None]
  - ASTHENIA [None]
  - DECREASED ACTIVITY [None]
  - DEPRESSED MOOD [None]
  - HEADACHE [None]
  - ILL-DEFINED DISORDER [None]
  - NAUSEA [None]
